FAERS Safety Report 19897100 (Version 1)
Quarter: 2021Q3

REPORT INFORMATION
  Report Type: Spontaneous
  Country: CN (occurrence: CN)
  Receive Date: 20210929
  Receipt Date: 20210929
  Transmission Date: 20211014
  Serious: Yes (Hospitalization)
  Sender: FDA-Public Use
  Company Number: CN-BAXTER-2021BAX030328

PATIENT
  Age: 76 Year
  Sex: Male

DRUGS (2)
  1. PERITONEAL DIALYSIS SOLUTION (LACTATE? G1.5%) [Suspect]
     Active Substance: CALCIUM CHLORIDE\DEXTROSE\MAGNESIUM CHLORIDE\SODIUM CHLORIDE\SODIUM LACTATE
     Indication: PERITONEAL DIALYSIS
  2. PERITONEAL DIALYSIS SOLUTION (LACTATE? G1.5%) [Suspect]
     Active Substance: CALCIUM CHLORIDE\DEXTROSE\MAGNESIUM CHLORIDE\SODIUM CHLORIDE\SODIUM LACTATE
     Indication: AZOTAEMIA
     Route: 033
     Dates: start: 2020

REACTIONS (6)
  - Sleep disorder [Not Recovered/Not Resolved]
  - Hernia [Not Recovered/Not Resolved]
  - Pruritus [Not Recovered/Not Resolved]
  - Decreased appetite [Not Recovered/Not Resolved]
  - Blood creatinine increased [Not Recovered/Not Resolved]
  - Cardiac discomfort [Not Recovered/Not Resolved]
